FAERS Safety Report 25754856 (Version 1)
Quarter: 2025Q3

REPORT INFORMATION
  Report Type: Spontaneous
  Country: US (occurrence: US)
  Receive Date: 20250903
  Receipt Date: 20250903
  Transmission Date: 20251021
  Serious: Yes (Other)
  Sender: JOHNSON AND JOHNSON
  Company Number: US-JNJFOC-20250833748

PATIENT
  Weight: 4.99 kg

DRUGS (2)
  1. STELARA [Suspect]
     Active Substance: USTEKINUMAB
     Indication: Product used for unknown indication
     Route: 063
  2. DTAP-HIB [Concomitant]
     Indication: Product used for unknown indication
     Route: 030
     Dates: start: 20250814, end: 20250814

REACTIONS (3)
  - Growth hormone deficiency [Not Recovered/Not Resolved]
  - Haemangioma [Unknown]
  - Maternal exposure during breast feeding [Unknown]

NARRATIVE: CASE EVENT DATE: 20250814
